FAERS Safety Report 8346981-5 (Version None)
Quarter: 2012Q2

REPORT INFORMATION
  Report Type: 
  Country: None (occurrence: None)
  Receive Date: 20120507
  Receipt Date: 20120507
  Transmission Date: 20120825
  Serious: Yes (Hospitalization)
  Sender: FDA-Public Use
  Company Number: None

PATIENT
  Sex: Male
  Weight: 83.18 kg

DRUGS (9)
  1. D5NS IV [Concomitant]
  2. LORTAB ELIXER [Concomitant]
  3. MILE'S SOLUTION [Concomitant]
  4. LIDOCAINE HCL VISCOUS [Concomitant]
  5. NS [Concomitant]
  6. SULCRAFATE [Concomitant]
  7. MORPHINE [Concomitant]
  8. ERBITUX [Suspect]
     Dosage: 3090 MG
  9. DIFLUCAN [Concomitant]

REACTIONS (5)
  - DEHYDRATION [None]
  - ORAL PAIN [None]
  - MUCOSAL INFLAMMATION [None]
  - HYPOPHAGIA [None]
  - OESOPHAGEAL PAIN [None]
